FAERS Safety Report 19394873 (Version 2)
Quarter: 2021Q3

REPORT INFORMATION
  Report Type: Report from Study
  Country: US (occurrence: US)
  Receive Date: 20210609
  Receipt Date: 20210904
  Transmission Date: 20211014
  Serious: Yes (Other)
  Sender: FDA-Public Use
  Company Number: US-TAKEDA-2021TUS028344

PATIENT
  Sex: Female
  Weight: 66 kg

DRUGS (6)
  1. HIZENTRA [Concomitant]
     Active Substance: HUMAN IMMUNOGLOBULIN G
  2. EPINEPHRINE [EPINEPHRINE BITARTRATE] [Concomitant]
  3. LMX4 [Concomitant]
     Active Substance: LIDOCAINE
  4. CUVITRU [Suspect]
     Active Substance: HUMAN IMMUNOGLOBULIN G
     Indication: IMMUNODEFICIENCY COMMON VARIABLE
     Dosage: 6 GRAM, 1/WEEK
     Route: 058
     Dates: start: 20201002
  5. ACETAMINOPHEN. [Concomitant]
     Active Substance: ACETAMINOPHEN
  6. DIPHENHYDRAMINE. [Concomitant]
     Active Substance: DIPHENHYDRAMINE

REACTIONS (7)
  - Nasal congestion [Unknown]
  - Illness [Unknown]
  - Haemorrhage [Unknown]
  - Multiple allergies [Unknown]
  - Rash [Unknown]
  - Pneumonia [Unknown]
  - Infusion site haemorrhage [Unknown]
